FAERS Safety Report 8838195 (Version 1)
Quarter: 2012Q4

REPORT INFORMATION
  Report Type: 
  Country: DE (occurrence: JP)
  Receive Date: 20121012
  Receipt Date: 20121012
  Transmission Date: 20130627
  Serious: Yes (Hospitalization, Other)
  Sender: FDA-Public Use
  Company Number: JP-BRISTOL-MYERS SQUIBB COMPANY-16998783

PATIENT
  Age: 55 Year
  Sex: Male

DRUGS (7)
  1. METGLUCO [Suspect]
     Indication: DIABETES MELLITUS
     Route: 048
     Dates: start: 20120908, end: 20120919
  2. FLUITRAN [Concomitant]
     Dosage: 23Oct10-22Jan11;1mg,22Jan11-ong;2mg
     Route: 048
     Dates: start: 20101023
  3. OLMETEC [Concomitant]
     Route: 048
     Dates: start: 20110326
  4. URSO [Concomitant]
     Route: 048
     Dates: start: 20111216
  5. LIPITOR [Concomitant]
     Indication: BLOOD CREATINE INCREASED
     Route: 048
     Dates: start: 20120623
  6. LIPITOR [Concomitant]
     Indication: BLOOD UREA INCREASED
     Route: 048
     Dates: start: 20120623
  7. FEBUXOSTAT [Concomitant]
     Indication: BLOOD URIC ACID INCREASED
     Route: 048
     Dates: start: 20120621

REACTIONS (2)
  - Metabolic acidosis [Recovered/Resolved]
  - Ketosis [Recovered/Resolved]
